FAERS Safety Report 8793970 (Version 2)
Quarter: 2012Q4

REPORT INFORMATION
  Report Type: 
  Country: CA (occurrence: CA)
  Receive Date: 20120917
  Receipt Date: 20120920
  Transmission Date: 20130627
  Serious: Yes (Hospitalization, Other)
  Sender: FDA-Public Use
  Company Number: PHHY2012CA050875

PATIENT
  Sex: Female

DRUGS (1)
  1. SANDOSTATIN LAR [Suspect]
     Indication: METASTATIC BRONCHIAL CARCINOMA
     Dosage: 30 mg, QMO
     Route: 030
     Dates: start: 20120305

REACTIONS (2)
  - Pneumonia [Recovered/Resolved]
  - Blood pressure increased [Unknown]
